FAERS Safety Report 8138370-3 (Version None)
Quarter: 2012Q1

REPORT INFORMATION
  Report Type: 
  Country: None (occurrence: None)
  Receive Date: 20120215
  Receipt Date: 20120206
  Transmission Date: 20120608
  Serious: Yes (Other)
  Sender: FDA-Public Use
  Company Number: BR-AMGEN-BRASP2012008730

PATIENT
  Age: 27 Year
  Sex: Female
  Weight: 74 kg

DRUGS (5)
  1. CODEINE [Concomitant]
     Indication: PRODUCT USED FOR UNKNOWN INDICATION
     Dosage: UNK
  2. ENBREL [Suspect]
     Indication: ANKYLOSING SPONDYLITIS
     Dosage: 50 MG, 1X/WEEKLY
     Route: 058
     Dates: start: 20110801, end: 20111101
  3. ENBREL [Suspect]
     Dosage: UNK,SOLUTION FOR INJECTION IN PRE-FILLED PEN
     Dates: start: 20111201
  4. ENBREL [Suspect]
     Dosage: 25 MG, 2X/WEEK
     Dates: start: 20120101, end: 20120112
  5. FOLIC ACID [Concomitant]
     Indication: PRODUCT USED FOR UNKNOWN INDICATION
     Dosage: UNK

REACTIONS (4)
  - CHRONIC SINUSITIS [None]
  - DRUG INEFFECTIVE [None]
  - PAIN [None]
  - PYELONEPHRITIS [None]
